FAERS Safety Report 9422950 (Version 1)
Quarter: 2013Q3

REPORT INFORMATION
  Report Type: Spontaneous
  Country: US (occurrence: US)
  Receive Date: 20130726
  Receipt Date: 20130726
  Transmission Date: 20140515
  Serious: Yes (Hospitalization)
  Sender: FDA-Public Use
  Company Number: US-JNJFOC-20130710641

PATIENT
  Sex: Female
  Weight: 47.63 kg

DRUGS (19)
  1. RISPERDAL [Suspect]
     Indication: SCHIZOPHRENIA
     Route: 048
  2. RISPERDAL [Suspect]
     Indication: SCHIZOPHRENIA
     Route: 048
  3. RISPERDAL [Suspect]
     Indication: BIPOLAR DISORDER
     Route: 048
  4. RISPERDAL [Suspect]
     Indication: BIPOLAR DISORDER
     Route: 048
  5. RISPERDAL CONSTA [Suspect]
     Indication: BIPOLAR DISORDER
     Dosage: 37.5MG SOLUTION EVERY TWO WEEKS INTRAMUSCULAR
     Route: 030
  6. RISPERDAL CONSTA [Suspect]
     Indication: BIPOLAR DISORDER
     Dosage: 25MG SOLUTION EVERY TWO WEEKS
     Route: 030
  7. RISPERDAL CONSTA [Suspect]
     Indication: SCHIZOPHRENIA
     Dosage: 25MG SOLUTION EVERY TWO WEEKS
     Route: 030
  8. RISPERDAL CONSTA [Suspect]
     Indication: SCHIZOPHRENIA
     Dosage: 37.5MG SOLUTION EVERY TWO WEEKS INTRAMUSCULAR
     Route: 030
  9. GEODON [Suspect]
     Indication: SCHIZOPHRENIA
     Route: 048
  10. GEODON [Suspect]
     Indication: BIPOLAR DISORDER
     Route: 048
  11. SEROQUEL [Suspect]
     Indication: BIPOLAR DISORDER
     Route: 048
  12. SEROQUEL [Suspect]
     Indication: SCHIZOPHRENIA
     Route: 048
  13. LORAZEPAM [Suspect]
     Indication: BIPOLAR DISORDER
     Route: 048
  14. LORAZEPAM [Suspect]
     Indication: SCHIZOPHRENIA
     Route: 048
  15. DEPAKOTE [Suspect]
     Indication: BIPOLAR DISORDER
     Route: 048
  16. DEPAKOTE [Suspect]
     Indication: SCHIZOPHRENIA
     Route: 048
  17. ZOLPIDEM [Suspect]
     Indication: BIPOLAR DISORDER
     Route: 048
  18. ZOLPIDEM [Suspect]
     Indication: SCHIZOPHRENIA
     Route: 048
  19. PHENOBARBITAL [Suspect]
     Indication: PRODUCT USED FOR UNKNOWN INDICATION
     Route: 065

REACTIONS (17)
  - Intentional self-injury [Recovered/Resolved]
  - Dyspnoea [Unknown]
  - Urinary incontinence [Recovered/Resolved]
  - Mood altered [Not Recovered/Not Resolved]
  - Vasodilatation [Not Recovered/Not Resolved]
  - Protrusion tongue [Recovered/Resolved]
  - Eating disorder [Recovered/Resolved]
  - Drug ineffective [Not Recovered/Not Resolved]
  - Akathisia [Recovered/Resolved]
  - Fall [Recovered/Resolved]
  - Eye movement disorder [Recovered/Resolved]
  - Insomnia [Not Recovered/Not Resolved]
  - Dizziness [Not Recovered/Not Resolved]
  - Anxiety [Not Recovered/Not Resolved]
  - Gait disturbance [Recovered/Resolved]
  - Muscle contracture [Recovered/Resolved]
  - Hypersensitivity [Recovered/Resolved]
